FAERS Safety Report 13530255 (Version 1)
Quarter: 2017Q2

REPORT INFORMATION
  Report Type: Spontaneous
  Country: US (occurrence: US)
  Receive Date: 20170509
  Receipt Date: 20170509
  Transmission Date: 20170830
  Serious: No
  Sender: FDA-Public Use
  Company Number: None

PATIENT
  Age: 61 Year
  Sex: Male

DRUGS (1)
  1. RIBASPHERE [Suspect]
     Active Substance: RIBAVIRIN

REACTIONS (5)
  - Malaise [None]
  - Insomnia [None]
  - Diarrhoea [None]
  - Muscle spasms [None]
  - Tinnitus [None]

NARRATIVE: CASE EVENT DATE: 20170509
